FAERS Safety Report 7711052-5 (Version None)
Quarter: 2011Q3

REPORT INFORMATION
  Report Type: 
  Country: None (occurrence: None)
  Receive Date: 20110826
  Receipt Date: 20110815
  Transmission Date: 20111222
  Serious: Yes (Death, Hospitalization)
  Sender: FDA-Public Use
  Company Number: JP-BRISTOL-MYERS SQUIBB COMPANY-15972961

PATIENT
  Age: 7 Month
  Sex: Female

DRUGS (6)
  1. HYDROCORTISONE [Suspect]
     Indication: ACUTE MYELOID LEUKAEMIA
  2. ETOPOSIDE [Suspect]
  3. CYTARABINE [Suspect]
     Dosage: ALSO:6MG
  4. METHOTREXATE [Suspect]
     Route: 037
  5. MITOXANTRONE [Suspect]
  6. GRANULOCYTE CSF [Concomitant]
     Indication: NEUTROPENIA

REACTIONS (9)
  - FEBRILE NEUTROPENIA [None]
  - JAUNDICE [None]
  - GASTROINTESTINAL HAEMORRHAGE [None]
  - DISSEMINATED INTRAVASCULAR COAGULATION [None]
  - HISTIOCYTOSIS HAEMATOPHAGIC [None]
  - ILEUS [None]
  - RESPIRATORY FAILURE [None]
  - ACUTE RESPIRATORY DISTRESS SYNDROME [None]
  - SHOCK [None]
